FAERS Safety Report 8341395-6 (Version None)
Quarter: 2012Q2

REPORT INFORMATION
  Report Type: 
  Country: None (occurrence: None)
  Receive Date: 20120507
  Receipt Date: 20120430
  Transmission Date: 20120825
  Serious: Yes (Hospitalization, Congenital Anomaly, Other)
  Sender: FDA-Public Use
  Company Number: US-PFIZER INC-2012048310

PATIENT
  Sex: Female
  Weight: 4.2 kg

DRUGS (2)
  1. ZOLOFT [Suspect]
     Indication: DEPRESSION
     Dosage: 100 MG, UNK
     Route: 064
  2. MULTI-VITAMINS [Concomitant]
     Dosage: ONE TABLET DAILY
     Route: 064

REACTIONS (27)
  - DILATATION VENTRICULAR [None]
  - OTITIS MEDIA CHRONIC [None]
  - ANOXIA [None]
  - HYPOXIC-ISCHAEMIC ENCEPHALOPATHY [None]
  - ATELECTASIS [None]
  - MATERNAL EXPOSURE TIMING UNSPECIFIED [None]
  - PULMONARY HAEMORRHAGE [None]
  - PULMONARY HYPERTENSION [None]
  - CARDIOMEGALY [None]
  - CARDIAC ARREST [None]
  - RESPIRATORY ARREST [None]
  - CEREBRAL ATROPHY [None]
  - CYTOGENETIC ABNORMALITY [None]
  - CONGENITAL GREAT VESSEL ANOMALY [None]
  - PATENT DUCTUS ARTERIOSUS [None]
  - VISUAL IMPAIRMENT [None]
  - NYSTAGMUS [None]
  - RIGHT ATRIAL DILATATION [None]
  - EMPHYSEMA [None]
  - PULMONARY VEIN STENOSIS [None]
  - ACUTE RESPIRATORY FAILURE [None]
  - ATRIAL SEPTAL DEFECT [None]
  - DEVELOPMENTAL DELAY [None]
  - STRABISMUS [None]
  - CONVULSION NEONATAL [None]
  - CHORIORETINITIS [None]
  - TRICUSPID VALVE INCOMPETENCE [None]
